FAERS Safety Report 16105601 (Version 1)
Quarter: 2019Q2

REPORT INFORMATION
  Report Type: Spontaneous
  Country: US (occurrence: US)
  Receive Date: 20190321
  Receipt Date: 20190321
  Transmission Date: 20190711
  Serious: Yes (Other)
  Sender: FDA-Public Use
  Company Number: None

PATIENT
  Age: 55 Year
  Sex: Female
  Weight: 67.23 kg

DRUGS (2)
  1. MAVYRET [Concomitant]
     Active Substance: GLECAPREVIR\PIBRENTASVIR
  2. IBRANCE [Suspect]
     Active Substance: PALBOCICLIB
     Indication: BREAST CANCER
     Route: 048
     Dates: start: 20170323

REACTIONS (2)
  - Fatigue [None]
  - Headache [None]
